FAERS Safety Report 17878017 (Version 1)
Quarter: 2020Q2

REPORT INFORMATION
  Report Type: Spontaneous
  Country: US (occurrence: US)
  Receive Date: 20200610
  Receipt Date: 20200610
  Transmission Date: 20200714
  Serious: No
  Sender: FDA-Public Use
  Company Number: US-JNJFOC-20200608807

PATIENT

DRUGS (9)
  1. MOTRIN [Suspect]
     Active Substance: IBUPROFEN
     Indication: ERYTHEMA
     Route: 065
  2. ALOE                               /01332701/ [Concomitant]
     Active Substance: ALOE
     Indication: ERYTHEMA
     Route: 065
  3. ALOE                               /01332701/ [Concomitant]
     Active Substance: ALOE
     Indication: PAIN
  4. NEOSPORIN [Concomitant]
     Active Substance: BACITRACIN ZINC\NEOMYCIN SULFATE\POLYMYXIN B SULFATE
     Indication: SWELLING
  5. NEOSPORIN [Concomitant]
     Active Substance: BACITRACIN ZINC\NEOMYCIN SULFATE\POLYMYXIN B SULFATE
     Indication: PAIN
  6. MOTRIN [Suspect]
     Active Substance: IBUPROFEN
     Indication: PAIN
  7. ALOE                               /01332701/ [Concomitant]
     Active Substance: ALOE
     Indication: SWELLING
  8. NEOSPORIN [Concomitant]
     Active Substance: BACITRACIN ZINC\NEOMYCIN SULFATE\POLYMYXIN B SULFATE
     Indication: ERYTHEMA
     Route: 065
  9. MOTRIN [Suspect]
     Active Substance: IBUPROFEN
     Indication: SWELLING

REACTIONS (1)
  - Product use in unapproved indication [Unknown]
